FAERS Safety Report 21600681 (Version 1)
Quarter: 2022Q4

REPORT INFORMATION
  Report Type: Other
  Country: CA (occurrence: CA)
  Receive Date: 20221116
  Receipt Date: 20221116
  Transmission Date: 20230113
  Serious: Yes (Other)
  Sender: FDA-Public Use
  Company Number: CA-APOTEX-2022AP015415

PATIENT
  Age: 66 Year
  Sex: Female

DRUGS (1)
  1. FULVESTRANT [Suspect]
     Active Substance: FULVESTRANT
     Indication: Breast cancer metastatic
     Dosage: 500 MILLIGRAM, Q.M.T.
     Route: 065

REACTIONS (5)
  - Hypertensive crisis [Recovered/Resolved]
  - Chills [Recovered/Resolved]
  - Fall [Recovered/Resolved]
  - Feeling cold [Recovered/Resolved]
  - Dizziness [Recovered/Resolved]
